FAERS Safety Report 14182354 (Version 1)
Quarter: 2017Q4

REPORT INFORMATION
  Report Type: Spontaneous
  Country: FR (occurrence: FR)
  Receive Date: 20171113
  Receipt Date: 20171113
  Transmission Date: 20180321
  Serious: Yes (Life-Threatening, Hospitalization)
  Sender: FDA-Public Use
  Company Number: FR-ACCORD-060978

PATIENT
  Age: 61 Year
  Sex: Male

DRUGS (3)
  1. FLUOROURACIL PFIZER [Suspect]
     Active Substance: FLUOROURACIL
     Indication: CHEMOTHERAPY
     Dosage: STRENGTH: 50 MG/ML, 1ST CYCLE??DOSE: 5950 MG IN ONE SINGLE INTAKE,??2ND CYCLE ON 07-AUG-2017
     Route: 042
     Dates: start: 20170717
  2. CISPLATIN ACCORD [Suspect]
     Active Substance: CISPLATIN
     Indication: CHEMOTHERAPY
     Dosage: STRENGTH: 1 MG/ML, 1ST CYCLE??DOSE: 119 MG IN ONE SINGLE INTAKE,??2ND CYCLE ON 07-AUG-2017
     Route: 042
     Dates: start: 20170717
  3. DOCETAXEL HOSPIRA [Suspect]
     Active Substance: DOCETAXEL
     Indication: CHEMOTHERAPY
     Dosage: STRENGTH: 10 MG/ML, 1ST CYCLE??DOSE: 120 MG IN ONE SINGLE INTAKE,??2ND CYCLE ON 07-AUG-2017
     Route: 042
     Dates: start: 20170717

REACTIONS (4)
  - Pseudomonas infection [Recovered/Resolved]
  - Septic shock [Recovered/Resolved]
  - Gastrointestinal disorder [Recovered/Resolved]
  - Febrile bone marrow aplasia [Recovered/Resolved]

NARRATIVE: CASE EVENT DATE: 20170815
